FAERS Safety Report 17913706 (Version 2)
Quarter: 2020Q3

REPORT INFORMATION
  Report Type: Report from Study
  Country: IT (occurrence: IT)
  Receive Date: 20200618
  Receipt Date: 20200909
  Transmission Date: 20201103
  Serious: Yes (Death, Other)
  Sender: FDA-Public Use
  Company Number: PHHY2019IT167808

PATIENT
  Age: 59 Year
  Sex: Male

DRUGS (13)
  1. TRAMETINIB [Suspect]
     Active Substance: TRAMETINIB
     Indication: METASTASES TO LIVER
     Dosage: 2 OT, UNK
     Route: 065
     Dates: start: 20180810, end: 20180818
  2. TRAMETINIB [Suspect]
     Active Substance: TRAMETINIB
     Indication: METASTASES TO LUNG
     Dosage: 2 OT, UNK
     Route: 065
     Dates: start: 20180820, end: 20180904
  3. TRAMETINIB [Suspect]
     Active Substance: TRAMETINIB
     Dosage: UNK
     Route: 048
     Dates: end: 20180905
  4. TRAMETINIB [Suspect]
     Active Substance: TRAMETINIB
     Indication: METASTATIC MALIGNANT MELANOMA
     Dosage: 2 OT, UNK
     Route: 065
     Dates: start: 20180523, end: 20180808
  5. SOLDESAM [Concomitant]
     Active Substance: DEXAMETHASONE
     Indication: PRODUCT USED FOR UNKNOWN INDICATION
     Dosage: 64 OT, UNK
     Route: 048
     Dates: start: 20180523
  6. TAFINLAR [Suspect]
     Active Substance: DABRAFENIB MESYLATE
     Indication: METASTATIC MALIGNANT MELANOMA
     Dosage: 300 OT, UNK
     Route: 065
     Dates: start: 20180523, end: 20180808
  7. TAFINLAR [Suspect]
     Active Substance: DABRAFENIB MESYLATE
     Indication: METASTASES TO LUNG
     Dosage: 300 OT, UNK
     Route: 065
     Dates: start: 20180820, end: 20180904
  8. TAFINLAR [Suspect]
     Active Substance: DABRAFENIB MESYLATE
     Indication: METASTASES TO LIVER
     Dosage: 300 OT, UNK
     Route: 065
     Dates: start: 20180810, end: 20180818
  9. TAFINLAR [Suspect]
     Active Substance: DABRAFENIB MESYLATE
     Dosage: UNK
     Route: 048
     Dates: end: 20180905
  10. TAFINLAR [Suspect]
     Active Substance: DABRAFENIB MESYLATE
     Dosage: 300 OT
     Route: 065
     Dates: start: 20180906, end: 20180906
  11. ZYLORIC [Concomitant]
     Active Substance: ALLOPURINOL
     Indication: PRODUCT USED FOR UNKNOWN INDICATION
     Dosage: 300 OT, UNK
     Route: 048
     Dates: start: 20180523
  12. LEVETIRACETAM. [Concomitant]
     Active Substance: LEVETIRACETAM
     Indication: SEIZURE
     Dosage: 500 OT
     Route: 048
     Dates: start: 20180420
  13. TRAMETINIB [Suspect]
     Active Substance: TRAMETINIB
     Dosage: 2 OT, UNK
     Route: 065
     Dates: start: 20180906, end: 20180906

REACTIONS (6)
  - Malignant neoplasm progression [Fatal]
  - Asthenia [Not Recovered/Not Resolved]
  - Hyperpyrexia [Recovered/Resolved]
  - Metastatic malignant melanoma [Fatal]
  - Hyperpyrexia [Recovered/Resolved]
  - Abdominal pain [Recovered/Resolved]

NARRATIVE: CASE EVENT DATE: 20180523
